FAERS Safety Report 7349688-6 (Version None)
Quarter: 2011Q1

REPORT INFORMATION
  Report Type: 
  Country: None (occurrence: None)
  Receive Date: 20110218
  Receipt Date: 20101209
  Transmission Date: 20110831
  Serious: Yes (Other)
  Sender: FDA-Public Use
  Company Number: THRO-2010-00046

PATIENT
  Age: 75 Year
  Sex: Female

DRUGS (1)
  1. RECOTHROM [Suspect]
     Indication: VASCULAR PSEUDOANEURYSM
     Dosage: INJECTION

REACTIONS (1)
  - DRUG INEFFECTIVE FOR UNAPPROVED INDICATION [None]
